FAERS Safety Report 7897015-8 (Version None)
Quarter: 2011Q4

REPORT INFORMATION
  Report Type: 
  Country: None (occurrence: None)
  Receive Date: 20111104
  Receipt Date: 20111104
  Transmission Date: 20120403
  Serious: Yes (Life-Threatening, Other)
  Sender: FDA-Public Use
  Company Number: None

PATIENT
  Sex: Female
  Weight: 63.5036 kg

DRUGS (1)
  1. ATENOLOL [Suspect]
     Indication: HEART RATE INCREASED
     Dosage: 50 M 1 - DAILY
     Dates: start: 20110601, end: 20110801

REACTIONS (21)
  - HOT FLUSH [None]
  - IRRITABILITY [None]
  - CONTUSION [None]
  - VISION BLURRED [None]
  - FATIGUE [None]
  - ALOPECIA [None]
  - VASODILATATION [None]
  - MOOD SWINGS [None]
  - INSOMNIA [None]
  - ARTHRALGIA [None]
  - PRODUCT SUBSTITUTION ISSUE [None]
  - AGGRESSION [None]
  - PALPITATIONS [None]
  - HEART RATE INCREASED [None]
  - NERVOUSNESS [None]
  - DIARRHOEA [None]
  - PRODUCT ODOUR ABNORMAL [None]
  - HYPERHIDROSIS [None]
  - PRURITUS [None]
  - TINNITUS [None]
  - FEELING JITTERY [None]
